FAERS Safety Report 9860336 (Version 1)
Quarter: 2014Q1

REPORT INFORMATION
  Report Type: Spontaneous
  Country: US (occurrence: US)
  Receive Date: 20140202
  Receipt Date: 20140202
  Transmission Date: 20141002
  Serious: Yes (Death)
  Sender: FDA-Public Use
  Company Number: CHPA2014US001477

PATIENT
  Age: 26 Year
  Sex: Male

DRUGS (5)
  1. ACETAMINOPHEN (PARACETAMOL) [Suspect]
  2. SALICYLATES [Suspect]
  3. QUETIAPINE [Suspect]
  4. FLUOXETINE [Suspect]
  5. PROPRANOLOL [Suspect]

REACTIONS (1)
  - Death [Fatal]
